FAERS Safety Report 7952144-5 (Version None)
Quarter: 2011Q4

REPORT INFORMATION
  Report Type: 
  Country: None (occurrence: None)
  Receive Date: 20111130
  Receipt Date: 20111130
  Transmission Date: 20120403
  Serious: Yes (Hospitalization)
  Sender: FDA-Public Use
  Company Number: None

PATIENT
  Age: 77 Year
  Sex: Male
  Weight: 100.5 kg

DRUGS (1)
  1. DASATINIB [Suspect]
     Indication: CHRONIC MYELOID LEUKAEMIA
     Dosage: 50 MG EVERY DAY PO
     Route: 048
     Dates: start: 20090408, end: 20111011

REACTIONS (3)
  - RESPIRATORY DISTRESS [None]
  - OEDEMA PERIPHERAL [None]
  - PLEURAL EFFUSION [None]
